FAERS Safety Report 14758918 (Version 2)
Quarter: 2018Q2

REPORT INFORMATION
  Report Type: Spontaneous
  Country: US (occurrence: US)
  Receive Date: 20180413
  Receipt Date: 20180518
  Transmission Date: 20180711
  Serious: No
  Sender: FDA-Public Use
  Company Number: US-VERTEX PHARMACEUTICALS-2018-002373

PATIENT
  Sex: Female

DRUGS (11)
  1. NOXAFIL [Concomitant]
     Active Substance: POSACONAZOLE
  2. SYMDEKO [Suspect]
     Active Substance: IVACAFTOR\TEZACAFTOR
     Indication: CYSTIC FIBROSIS
     Dosage: UNK
     Route: 048
  3. POSACONAZOLE [Concomitant]
     Active Substance: POSACONAZOLE
  4. PULMOZYME [Concomitant]
     Active Substance: DORNASE ALFA
  5. BASAGLAR [Concomitant]
     Active Substance: INSULIN GLARGINE
  6. HUMALOG [Concomitant]
     Active Substance: INSULIN LISPRO
  7. TOBI [Concomitant]
     Active Substance: TOBRAMYCIN
  8. OMEPRAZOLE. [Concomitant]
     Active Substance: OMEPRAZOLE
  9. SODIUM CHLORIDE. [Concomitant]
     Active Substance: SODIUM CHLORIDE
  10. CREON [Concomitant]
     Active Substance: PANCRELIPASE AMYLASE\PANCRELIPASE LIPASE\PANCRELIPASE PROTEASE
  11. ALBUTEROL                          /00139501/ [Concomitant]
     Active Substance: ALBUTEROL

REACTIONS (1)
  - Intentional product misuse [Unknown]
